FAERS Safety Report 8057248-7 (Version None)
Quarter: 2012Q1

REPORT INFORMATION
  Report Type: 
  Country: None (occurrence: None)
  Receive Date: 20120119
  Receipt Date: 20120116
  Transmission Date: 20120608
  Serious: Yes (Life-Threatening, Hospitalization)
  Sender: FDA-Public Use
  Company Number: PHHY2011BR102952

PATIENT
  Sex: Female

DRUGS (5)
  1. ONBREZ [Suspect]
     Indication: DYSPNOEA
     Dosage: 150 UG, UNK
  2. OXYGEN [Concomitant]
     Dosage: UNK
  3. ATROVENT [Concomitant]
  4. BAMIFIX [Concomitant]
     Indication: DYSPNOEA
     Dosage: 1 DF, BID
  5. BEROTEC [Concomitant]

REACTIONS (3)
  - DRUG INEFFECTIVE [None]
  - CHRONIC OBSTRUCTIVE PULMONARY DISEASE [None]
  - SUFFOCATION FEELING [None]
